FAERS Safety Report 25691640 (Version 1)
Quarter: 2025Q3

REPORT INFORMATION
  Report Type: Spontaneous
  Country: EU (occurrence: EU)
  Receive Date: 20250818
  Receipt Date: 20250818
  Transmission Date: 20251021
  Serious: Yes (Hospitalization)
  Sender: MYLAN
  Company Number: None

PATIENT
  Age: 81 Year
  Sex: Male
  Weight: 77 kg

DRUGS (36)
  1. ATORVASTATIN [Suspect]
     Active Substance: ATORVASTATIN
     Indication: Hypercholesterolaemia
     Dosage: 40 MILLIGRAM, QD
     Dates: start: 20250624, end: 20250628
  2. ATORVASTATIN [Suspect]
     Active Substance: ATORVASTATIN
     Dosage: 40 MILLIGRAM, QD
     Route: 048
     Dates: start: 20250624, end: 20250628
  3. ATORVASTATIN [Suspect]
     Active Substance: ATORVASTATIN
     Dosage: 40 MILLIGRAM, QD
     Route: 048
     Dates: start: 20250624, end: 20250628
  4. ATORVASTATIN [Suspect]
     Active Substance: ATORVASTATIN
     Dosage: 40 MILLIGRAM, QD
     Dates: start: 20250624, end: 20250628
  5. KARDEGIC [Suspect]
     Active Substance: ASPIRIN DL-LYSINE
     Indication: Cerebrovascular accident prophylaxis
     Dosage: 75 MILLIGRAM, QD,POWDER FOR ORAL SOLUTION IN SACHET
     Dates: start: 202303, end: 20250628
  6. KARDEGIC [Suspect]
     Active Substance: ASPIRIN DL-LYSINE
     Dosage: 75 MILLIGRAM, QD,POWDER FOR ORAL SOLUTION IN SACHET
     Route: 048
     Dates: start: 202303, end: 20250628
  7. KARDEGIC [Suspect]
     Active Substance: ASPIRIN DL-LYSINE
     Dosage: 75 MILLIGRAM, QD,POWDER FOR ORAL SOLUTION IN SACHET
     Route: 048
     Dates: start: 202303, end: 20250628
  8. KARDEGIC [Suspect]
     Active Substance: ASPIRIN DL-LYSINE
     Dosage: 75 MILLIGRAM, QD,POWDER FOR ORAL SOLUTION IN SACHET
     Dates: start: 202303, end: 20250628
  9. LEVETIRACETAM [Concomitant]
     Active Substance: LEVETIRACETAM
  10. LEVETIRACETAM [Concomitant]
     Active Substance: LEVETIRACETAM
     Route: 065
  11. LEVETIRACETAM [Concomitant]
     Active Substance: LEVETIRACETAM
     Route: 065
  12. LEVETIRACETAM [Concomitant]
     Active Substance: LEVETIRACETAM
  13. PANTOPRAZOLE [Concomitant]
     Active Substance: PANTOPRAZOLE
  14. PANTOPRAZOLE [Concomitant]
     Active Substance: PANTOPRAZOLE
     Route: 065
  15. PANTOPRAZOLE [Concomitant]
     Active Substance: PANTOPRAZOLE
     Route: 065
  16. PANTOPRAZOLE [Concomitant]
     Active Substance: PANTOPRAZOLE
  17. METFORMIN PAMOATE [Concomitant]
     Active Substance: METFORMIN PAMOATE
  18. METFORMIN PAMOATE [Concomitant]
     Active Substance: METFORMIN PAMOATE
     Route: 065
  19. METFORMIN PAMOATE [Concomitant]
     Active Substance: METFORMIN PAMOATE
     Route: 065
  20. METFORMIN PAMOATE [Concomitant]
     Active Substance: METFORMIN PAMOATE
  21. NITROGLYCERIN [Concomitant]
     Active Substance: NITROGLYCERIN
  22. NITROGLYCERIN [Concomitant]
     Active Substance: NITROGLYCERIN
     Route: 065
  23. NITROGLYCERIN [Concomitant]
     Active Substance: NITROGLYCERIN
     Route: 065
  24. NITROGLYCERIN [Concomitant]
     Active Substance: NITROGLYCERIN
  25. NICARDIPINE HYDROCHLORIDE [Concomitant]
     Active Substance: NICARDIPINE HYDROCHLORIDE
  26. NICARDIPINE HYDROCHLORIDE [Concomitant]
     Active Substance: NICARDIPINE HYDROCHLORIDE
     Route: 065
  27. NICARDIPINE HYDROCHLORIDE [Concomitant]
     Active Substance: NICARDIPINE HYDROCHLORIDE
     Route: 065
  28. NICARDIPINE HYDROCHLORIDE [Concomitant]
     Active Substance: NICARDIPINE HYDROCHLORIDE
  29. REPAGLINIDE [Concomitant]
     Active Substance: REPAGLINIDE
  30. REPAGLINIDE [Concomitant]
     Active Substance: REPAGLINIDE
     Route: 065
  31. REPAGLINIDE [Concomitant]
     Active Substance: REPAGLINIDE
     Route: 065
  32. REPAGLINIDE [Concomitant]
     Active Substance: REPAGLINIDE
  33. FINASTERIDE [Concomitant]
     Active Substance: FINASTERIDE
  34. FINASTERIDE [Concomitant]
     Active Substance: FINASTERIDE
     Route: 065
  35. FINASTERIDE [Concomitant]
     Active Substance: FINASTERIDE
     Route: 065
  36. FINASTERIDE [Concomitant]
     Active Substance: FINASTERIDE

REACTIONS (2)
  - Immune thrombocytopenia [Recovered/Resolved]
  - Haemorrhage [Recovered/Resolved]

NARRATIVE: CASE EVENT DATE: 20250627
